FAERS Safety Report 10500979 (Version 8)
Quarter: 2015Q2

REPORT INFORMATION
  Report Type: Report from Study
  Country: TW (occurrence: TW)
  Receive Date: 20141007
  Receipt Date: 20150521
  Transmission Date: 20150821
  Serious: Yes (Hospitalization)
  Sender: FDA-Public Use
  Company Number: TW-ROCHE-1470057

PATIENT
  Age: 73 Year
  Sex: Male
  Weight: 64.47 kg

DRUGS (5)
  1. RANIBIZUMAB [Suspect]
     Active Substance: RANIBIZUMAB
     Indication: AGE-RELATED MACULAR DEGENERATION
     Dosage: DOSE: 10MG/ML
     Route: 050
     Dates: start: 20140715
  2. RANIBIZUMAB [Suspect]
     Active Substance: RANIBIZUMAB
     Dosage: MOST RECENT DOSE  WAS GIVEN ON 21/NOV/2014
     Route: 050
     Dates: start: 20141121
  3. AVASTIN [Suspect]
     Active Substance: BEVACIZUMAB
     Indication: PRODUCT USED FOR UNKNOWN INDICATION
     Route: 042
     Dates: start: 20140721
  4. AVASTIN [Suspect]
     Active Substance: BEVACIZUMAB
     Route: 042
     Dates: start: 20140924
  5. RANIBIZUMAB [Suspect]
     Active Substance: RANIBIZUMAB
     Dosage: MOST RECENT DOSE ADMINISTERED ON 12/AUG/2014
     Route: 050
     Dates: start: 20140812

REACTIONS (4)
  - Vitreous haemorrhage [Recovering/Resolving]
  - Lacrimation increased [Unknown]
  - Sensation of foreign body [Unknown]
  - Eye pain [Unknown]

NARRATIVE: CASE EVENT DATE: 20140909
